FAERS Safety Report 21242044 (Version 1)
Quarter: 2022Q3

REPORT INFORMATION
  Report Type: Spontaneous
  Country: CN (occurrence: CN)
  Receive Date: 20220823
  Receipt Date: 20220823
  Transmission Date: 20221026
  Serious: Yes (Hospitalization, Other)
  Sender: FDA-Public Use
  Company Number: CN-SUN PHARMACEUTICAL INDUSTRIES LTD-2022R1-348570

PATIENT
  Age: 78 Year
  Sex: Female

DRUGS (1)
  1. RIVASTIGMINE TARTRATE [Suspect]
     Active Substance: RIVASTIGMINE TARTRATE
     Indication: Dementia Alzheimer^s type
     Dosage: 3 MILLIGRAM, DAILY
     Route: 048
     Dates: start: 20220728, end: 20220729

REACTIONS (5)
  - Lethargy [Unknown]
  - Unresponsive to stimuli [Unknown]
  - Oxygen saturation decreased [Unknown]
  - Pupillary reflex impaired [Unknown]
  - Somnolence [Recovered/Resolved]

NARRATIVE: CASE EVENT DATE: 20220729
